FAERS Safety Report 17768615 (Version 2)
Quarter: 2020Q2

REPORT INFORMATION
  Report Type: Spontaneous
  Country: US (occurrence: US)
  Receive Date: 20200512
  Receipt Date: 20200520
  Transmission Date: 20200714
  Serious: No
  Sender: FDA-Public Use
  Company Number: US-ASTRAZENECA-2020SE60311

PATIENT
  Sex: Female

DRUGS (1)
  1. SYMBICORT [Suspect]
     Active Substance: BUDESONIDE\FORMOTEROL FUMARATE DIHYDRATE
     Indication: ASTHMA
     Dosage: UG/INHAL
     Route: 055
     Dates: start: 2018

REACTIONS (3)
  - Anxiety [Not Recovered/Not Resolved]
  - Feeling jittery [Unknown]
  - Therapy interrupted [Recovered/Resolved]
